FAERS Safety Report 10598923 (Version 2)
Quarter: 2015Q1

REPORT INFORMATION
  Report Type: Report from Study
  Country: US (occurrence: US)
  Receive Date: 20141121
  Receipt Date: 20150106
  Transmission Date: 20150720
  Serious: Yes (Hospitalization, Other)
  Sender: FDA-Public Use
  Company Number: US-BRISTOL-MYERS SQUIBB COMPANY-21587910

PATIENT
  Age: 68 Year
  Sex: Female
  Weight: 63.94 kg

DRUGS (15)
  1. CAMPATH [Suspect]
     Active Substance: ALEMTUZUMAB
     Indication: RENAL TRANSPLANT
     Route: 065
  2. VALGANCICLOVIR [Concomitant]
     Active Substance: VALGANCICLOVIR
  3. MEMANTINE HCL [Concomitant]
     Active Substance: MEMANTINE
  4. INSULIN GLARGINE [Concomitant]
     Active Substance: INSULIN GLARGINE
  5. METOPROLOL [Concomitant]
     Active Substance: METOPROLOL
  6. KEPPRA [Concomitant]
     Active Substance: LEVETIRACETAM
  7. LISINOPRIL. [Concomitant]
     Active Substance: LISINOPRIL
  8. MYCOPHENOLATE MOFETIL. [Suspect]
     Active Substance: MYCOPHENOLATE MOFETIL
     Indication: RENAL TRANSPLANT
     Dosage: 750 MG, UNK
     Route: 065
  9. NOVOLOG [Concomitant]
     Active Substance: INSULIN ASPART
  10. ASPIRIN. [Concomitant]
     Active Substance: ASPIRIN
  11. CELEXA [Concomitant]
     Active Substance: CITALOPRAM HYDROBROMIDE
  12. LIPITOR [Concomitant]
     Active Substance: ATORVASTATIN CALCIUM
  13. TRIMETHOPRIM. [Concomitant]
     Active Substance: TRIMETHOPRIM
  14. CYCLOSPORIN [Concomitant]
     Active Substance: CYCLOSPORINE
  15. BELATACEPT [Suspect]
     Active Substance: BELATACEPT
     Indication: RENAL TRANSPLANT
     Dosage: UNK
     Route: 065
     Dates: start: 20131023, end: 20140214

REACTIONS (3)
  - Urinary tract infection [Recovered/Resolved]
  - Dementia Alzheimer^s type [Unknown]
  - Mental status changes [Recovered/Resolved]

NARRATIVE: CASE EVENT DATE: 2014
